FAERS Safety Report 6521603-4 (Version None)
Quarter: 2009Q4

REPORT INFORMATION
  Report Type: 
  Country: None (occurrence: None)
  Receive Date: 20091230
  Receipt Date: 20091225
  Transmission Date: 20100525
  Serious: Yes (Other)
  Sender: FDA-Public Use
  Company Number: JP-ASTRAZENECA-2009SE32264

PATIENT
  Age: 9560 Day
  Sex: Male

DRUGS (3)
  1. MEROPEN [Suspect]
     Indication: MENINGITIS BACTERIAL
     Route: 041
     Dates: start: 20080917, end: 20081004
  2. VANCOMYCIN [Concomitant]
     Route: 041
  3. DEXAMETHASONE SODIUM PHOSPHATE [Concomitant]
     Route: 041

REACTIONS (2)
  - LIVER DISORDER [None]
  - TOXIC SKIN ERUPTION [None]
